FAERS Safety Report 24131391 (Version 1)
Quarter: 2024Q3

REPORT INFORMATION
  Report Type: Spontaneous
  Country: DE (occurrence: DE)
  Receive Date: 20240724
  Receipt Date: 20240724
  Transmission Date: 20241017
  Serious: Yes (Death)
  Sender: JOHNSON AND JOHNSON
  Company Number: DE-DCGMA-24203600

PATIENT
  Age: 72 Year
  Sex: Male

DRUGS (1)
  1. CARVYKTI [Suspect]
     Active Substance: CILTACABTAGENE AUTOLEUCEL
     Indication: Plasma cell myeloma
     Route: 042
     Dates: start: 20240429

REACTIONS (2)
  - Acute hepatic failure [Fatal]
  - Adenovirus reactivation [Fatal]

NARRATIVE: CASE EVENT DATE: 20240617
